FAERS Safety Report 24437090 (Version 2)
Quarter: 2024Q4

REPORT INFORMATION
  Report Type: Spontaneous
  Country: GB (occurrence: GB)
  Receive Date: 20241015
  Receipt Date: 20241109
  Transmission Date: 20250114
  Serious: Yes (Disabling, Other)
  Sender: ROCHE
  Company Number: None

PATIENT
  Age: 37 Year
  Sex: Female
  Weight: 70 kg

DRUGS (2)
  1. RITUXIMAB [Suspect]
     Active Substance: RITUXIMAB
     Indication: Thrombotic thrombocytopenic purpura
     Dosage: 375MG/M2
     Route: 065
     Dates: start: 20240824, end: 20240829
  2. HYDROXYCHLOROQUINE [Concomitant]
     Active Substance: HYDROXYCHLOROQUINE
     Indication: Systemic lupus erythematosus
     Route: 050
     Dates: start: 2022

REACTIONS (12)
  - Nephrotic syndrome [Recovering/Resolving]
  - Myalgia [Unknown]
  - Platelet count decreased [Recovering/Resolving]
  - C-reactive protein increased [Unknown]
  - Haemoglobin [Unknown]
  - Oropharyngeal pain [Unknown]
  - Acute kidney injury [Unknown]
  - Rash maculo-papular [Recovering/Resolving]
  - Pyrexia [Unknown]
  - Myalgia [Unknown]
  - Neutrophil count decreased [Recovering/Resolving]
  - Chest pain [Unknown]

NARRATIVE: CASE EVENT DATE: 20240903
